FAERS Safety Report 12162584 (Version 1)
Quarter: 2016Q1

REPORT INFORMATION
  Report Type: Spontaneous
  Country: US (occurrence: None)
  Receive Date: 20160308
  Receipt Date: 20160308
  Transmission Date: 20160526
  Serious: Yes (Disabling)
  Sender: FDA-Public Use
  Company Number: None

PATIENT
  Age: 27 Year
  Sex: Female
  Weight: 68.04 kg

DRUGS (2)
  1. MIRENA [Suspect]
     Active Substance: LEVONORGESTREL
  2. ESSENTIAL OILS. [Concomitant]
     Active Substance: ESSENTIAL OILS

REACTIONS (9)
  - Weight increased [None]
  - Acne [None]
  - Nervous system disorder [None]
  - Depression [None]
  - Affective disorder [None]
  - Alopecia [None]
  - Eczema [None]
  - Paraesthesia [None]
  - Hypoaesthesia [None]

NARRATIVE: CASE EVENT DATE: 20160201
